FAERS Safety Report 4760183-0 (Version None)
Quarter: 2005Q3

REPORT INFORMATION
  Report Type: 
  Country: None (occurrence: None)
  Receive Date: 20050831
  Receipt Date: 20050831
  Transmission Date: 20060218
  Serious: Yes (Hospitalization)
  Sender: FDA-Public Use
  Company Number: None

PATIENT
  Age: 63 Year
  Sex: Female

DRUGS (16)
  1. HYCODAN [Suspect]
     Indication: COUGH
     Dosage: PO
     Route: 048
  2. THEOPHYLLINE  -THEO-DUR 24- [Concomitant]
  3. PREDNISONE TAB [Concomitant]
  4. SULFAMETHOXAZOLE/TRIMETHOPRIM -SEPTRA DS- [Concomitant]
  5. HOMATROPINE/HYDROCODONE  -HYCODAN- [Concomitant]
  6. EFFEXOR [Concomitant]
  7. LASIX [Concomitant]
  8. MONTELUKAST -SINGULAIR- [Concomitant]
  9. RISEDRONATE  -ACTONEL- [Concomitant]
  10. K-DUR 10 [Concomitant]
  11. FLUTICASONE  -FLOVENT- [Concomitant]
  12. ALBUTEROL/IPRATROPIUM  -COMBIVENT- [Concomitant]
  13. LEVALBUTEROL  -XOPENEX- [Concomitant]
  14. REGLAN [Concomitant]
  15. NEXIUM [Concomitant]
  16. MULTIVITAMIN-CENTRUM SILVER [Concomitant]

REACTIONS (6)
  - CONDITION AGGRAVATED [None]
  - CONFUSIONAL STATE [None]
  - MENTAL STATUS CHANGES [None]
  - PRODUCTIVE COUGH [None]
  - PSYCHOTIC DISORDER [None]
  - SPUTUM DISCOLOURED [None]
